FAERS Safety Report 5824808-0 (Version None)
Quarter: 2008Q3

REPORT INFORMATION
  Report Type: 
  Country: None (occurrence: None)
  Receive Date: 20080728
  Receipt Date: 20080714
  Transmission Date: 20090109
  Serious: Yes (Hospitalization)
  Sender: FDA-Public Use
  Company Number: PHHO2008VE08802

PATIENT
  Sex: Female
  Weight: 76.5 kg

DRUGS (4)
  1. TASIGNA [Suspect]
     Indication: CHRONIC MYELOID LEUKAEMIA
     Dosage: 400MG/DAY
     Route: 048
     Dates: start: 20071204
  2. VALSARTAN [Concomitant]
  3. LEVOTHYROXINE SODIUM [Concomitant]
  4. LORATADINE [Concomitant]

REACTIONS (6)
  - ANGINA PECTORIS [None]
  - BLOOD CREATINE PHOSPHOKINASE MB INCREASED [None]
  - CHEST DISCOMFORT [None]
  - CORONARY ARTERIAL STENT INSERTION [None]
  - DYSPNOEA [None]
  - MYOCARDIAL ISCHAEMIA [None]
